FAERS Safety Report 10542543 (Version 1)
Quarter: 2014Q4

REPORT INFORMATION
  Report Type: Spontaneous
  Country: US (occurrence: None)
  Receive Date: 20141024
  Receipt Date: 20141024
  Transmission Date: 20150529
  Serious: Yes (Disabling)
  Sender: FDA-Public Use
  Company Number: None

PATIENT
  Age: 51 Year
  Sex: Female
  Weight: 68.04 kg

DRUGS (2)
  1. PROACTIV DEEP CLEANSING WASH [Suspect]
     Active Substance: SALICYLIC ACID
     Indication: ACNE
     Dates: start: 20141020, end: 20141021
  2. PROACTIV DEEP CLEANSING WASH [Suspect]
     Active Substance: SALICYLIC ACID
     Indication: THERAPEUTIC SKIN CARE TOPICAL
     Dates: start: 20141020, end: 20141021

REACTIONS (8)
  - Acne [None]
  - Headache [None]
  - Head discomfort [None]
  - Facial pain [None]
  - Lymphadenopathy [None]
  - Rash papular [None]
  - Musculoskeletal discomfort [None]
  - Eye swelling [None]

NARRATIVE: CASE EVENT DATE: 20141020
